FAERS Safety Report 24835096 (Version 1)
Quarter: 2025Q1

REPORT INFORMATION
  Report Type: Spontaneous
  Country: IT (occurrence: IT)
  Receive Date: 20250113
  Receipt Date: 20250113
  Transmission Date: 20250408
  Serious: Yes (Hospitalization, Other)
  Sender: CHEPLAPHARM
  Company Number: IT-GLAXOSMITHKLINE-IT2024GSK057066

PATIENT
  Age: 68 Year
  Sex: Male

DRUGS (4)
  1. OLANZAPINE [Suspect]
     Active Substance: OLANZAPINE
     Dosage: 5 MG, 1D. PATIENT WAS DISCHARGED RECOMMENDING OLANZAPINE SUSPENSION.?DAILY DOSE: 5 MILLIGRAM
  2. QUETIAPINE [Suspect]
     Active Substance: QUETIAPINE
     Dosage: QUETIAPINE 50 MG/D?DAILY DOSE: 50 MILLIGRAM
  3. LITHIUM [Suspect]
     Active Substance: LITHIUM
     Indication: Bipolar disorder
     Dosage: 900 MG, 1D. LITHIUM 900 MG/D (WHICH HE HAD BEEN TAKING FOR 30 YEARS)?LITHIUM WAS SUSPENDED (DAY 5)
  4. PAROXETINE [Suspect]
     Active Substance: PAROXETINE
     Dosage: 20 MG, 1D?DAILY DOSE: 20 MILLIGRAM

REACTIONS (12)
  - Neurotoxicity [Recovering/Resolving]
  - Gait disturbance [Recovering/Resolving]
  - Fall [Recovering/Resolving]
  - Head injury [Recovering/Resolving]
  - Pneumonia [Recovered/Resolved]
  - Hypernatraemia [Recovering/Resolving]
  - Neurological symptom [Recovering/Resolving]
  - Unresponsive to stimuli [Recovering/Resolving]
  - Encephalopathy [Recovering/Resolving]
  - Balance disorder [Recovering/Resolving]
  - Psychomotor retardation [Recovering/Resolving]
  - Condition aggravated [Recovering/Resolving]
